FAERS Safety Report 5123339-3 (Version None)
Quarter: 2006Q4

REPORT INFORMATION
  Report Type: 
  Country: None (occurrence: None)
  Receive Date: 20061005
  Receipt Date: 20060926
  Transmission Date: 20070319
  Serious: Yes (Hospitalization)
  Sender: FDA-Public Use
  Company Number: HQWYE380317MAY06

PATIENT
  Age: 58 Year
  Sex: Female

DRUGS (2)
  1. VENLAFAXINE HCL [Suspect]
     Indication: DEPRESSION
     Dosage: 75 MG 1X PER 1 DAY
     Route: 048
     Dates: start: 20051208, end: 20060506
  2. LENDORM [Concomitant]

REACTIONS (6)
  - DIZZINESS [None]
  - GASTROINTESTINAL INFLAMMATION [None]
  - LARGE INTESTINE CARCINOMA [None]
  - METASTASIS [None]
  - NAUSEA [None]
  - VOMITING [None]
